FAERS Safety Report 15959343 (Version 2)
Quarter: 2021Q3

REPORT INFORMATION
  Report Type: Spontaneous
  Country: US (occurrence: US)
  Receive Date: 20190214
  Receipt Date: 20210827
  Transmission Date: 20211014
  Serious: Yes (Hospitalization, Disabling, Other)
  Sender: FDA-Public Use
  Company Number: US-TEVA-2019-US-1008400

PATIENT
  Age: 58 Year
  Sex: Female
  Weight: 112.4 kg

DRUGS (16)
  1. MULTIVITAMIN WITH MINERALS [Concomitant]
     Active Substance: MINERALS\VITAMINS
     Dosage: EVERY MORNING
     Route: 048
  2. ROSUVASTATIN. [Concomitant]
     Active Substance: ROSUVASTATIN
     Indication: HYPERLIPIDAEMIA
     Dosage: EVERY MORNING
     Route: 048
  3. CYTOXAN [Suspect]
     Active Substance: CYCLOPHOSPHAMIDE
     Indication: BREAST CANCER FEMALE
     Dosage: Q 3WEEKS? 4 WEEKS INTERRUPTIONS
     Route: 065
     Dates: start: 20150312, end: 20150522
  4. FISH OIL?OMEGA?3 FATTY ACIDS [Concomitant]
     Dosage: 1 GRAM DAILY; EVERY MORNING
     Route: 048
  5. GABAPENTIN. [Concomitant]
     Active Substance: GABAPENTIN
     Dosage: 900 MG QAM AND PM AND 600MG QNOON
     Route: 065
  6. IBUPROFEN. [Concomitant]
     Active Substance: IBUPROFEN
     Indication: SPINAL OSTEOARTHRITIS
  7. SPIRONOLACTONE. [Concomitant]
     Active Substance: SPIRONOLACTONE
     Indication: HYPERTENSION
     Route: 065
  8. VITAMIN D3 [Concomitant]
     Active Substance: CHOLECALCIFEROL
     Dosage: EVERY MORNING
     Route: 048
  9. DULOXETINE. [Concomitant]
     Active Substance: DULOXETINE
     Dosage: 30 MILLIGRAM DAILY;
     Route: 048
  10. POLYETHYLENE GLYCOL [Concomitant]
     Active Substance: POLYETHYLENE GLYCOLS
     Dosage: TAKE 1 PACKET BY MOUTH EVERY 7 DAYS
     Route: 048
  11. METOPROLOL. [Concomitant]
     Active Substance: METOPROLOL
     Dosage: 50 MILLIGRAM DAILY; TAKE WITH OR IMMEDIATELY FOLLOWING A MEAL
     Route: 048
  12. PYRIDOXINE [Concomitant]
     Active Substance: PYRIDOXINE
     Dosage: EVERY MORNING
     Route: 048
  13. DOCETAXEL SAGENT [Suspect]
     Active Substance: DOCETAXEL
     Indication: BREAST CANCER FEMALE
     Dosage: NUMBER OF CYCLE ? 04, FREQUENCY ? EVERY THREE WEEKS
     Route: 042
     Dates: start: 20150227, end: 20150501
  14. CARVEDILOL. [Concomitant]
     Active Substance: CARVEDILOL
     Indication: ESSENTIAL HYPERTENSION
     Route: 048
  15. PANTOPRAZOLE [Concomitant]
     Active Substance: PANTOPRAZOLE
     Indication: GASTROOESOPHAGEAL REFLUX DISEASE
     Route: 065
  16. PREDNISONE. [Concomitant]
     Active Substance: PREDNISONE
     Route: 048

REACTIONS (16)
  - Hair texture abnormal [Not Recovered/Not Resolved]
  - Gastrointestinal disorder [Not Recovered/Not Resolved]
  - Fluid retention [Recovered/Resolved]
  - Dyspnoea [Unknown]
  - Madarosis [Not Recovered/Not Resolved]
  - Hair colour changes [Not Recovered/Not Resolved]
  - Weight increased [Unknown]
  - Infusion site extravasation [Recovering/Resolving]
  - Hyperaesthesia [Unknown]
  - Alopecia areata [Not Recovered/Not Resolved]
  - Neuropathy peripheral [Unknown]
  - Phlebitis [Recovering/Resolving]
  - Cellulitis [Recovering/Resolving]
  - Drug eruption [Unknown]
  - Infusion site discolouration [Recovering/Resolving]
  - Drug hypersensitivity [Unknown]

NARRATIVE: CASE EVENT DATE: 2015
